FAERS Safety Report 4273719-3 (Version None)
Quarter: 2004Q1

REPORT INFORMATION
  Report Type: 
  Country: None (occurrence: None)
  Receive Date: 20040116
  Receipt Date: 20040116
  Transmission Date: 20041129
  Serious: Yes (Disabling, Congenital Anomaly, Other)
  Sender: FDA-Public Use
  Company Number: None

PATIENT
  Age: 15 Year
  Sex: Male
  Weight: 68.0396 kg

DRUGS (1)
  1. ZYPREXA [Suspect]
     Indication: SCHIZOPHRENIA
     Dosage: 10 MG

REACTIONS (7)
  - AMNESIA [None]
  - ANXIETY [None]
  - DRUG DEPENDENCE [None]
  - HALLUCINATION [None]
  - NERVOUS SYSTEM DISORDER [None]
  - POISONING [None]
  - RHEUMATOID ARTHRITIS [None]
